FAERS Safety Report 6356067-7 (Version None)
Quarter: 2009Q3

REPORT INFORMATION
  Report Type: 
  Country: None (occurrence: None)
  Receive Date: 20090914
  Receipt Date: 20090914
  Transmission Date: 20100115
  Serious: Yes (Other)
  Sender: FDA-Public Use
  Company Number: None

PATIENT
  Age: 56 Year
  Sex: Female
  Weight: 107.0489 kg

DRUGS (1)
  1. THYROID TAB [Suspect]
     Indication: THYROIDECTOMY
     Dosage: 120 MG 1 DAY PO
     Route: 048

REACTIONS (3)
  - FATIGUE [None]
  - PRODUCT SUBSTITUTION ISSUE [None]
  - QUALITY OF LIFE DECREASED [None]
